FAERS Safety Report 8429655-1 (Version None)
Quarter: 2012Q2

REPORT INFORMATION
  Report Type: 
  Country: None (occurrence: None)
  Receive Date: 20120524
  Receipt Date: 20110823
  Transmission Date: 20120825
  Serious: Yes (Other)
  Sender: FDA-Public Use
  Company Number: 2011028199

PATIENT
  Sex: Female
  Weight: 72.5755 kg

DRUGS (16)
  1. CIPRO [Concomitant]
  2. HIZENTRA [Suspect]
     Indication: HYPOGLOBULINAEMIA
     Dosage: (15 ML QOD, 15 ML (3 G) IN 1 SITE OVER 1 H 15 MIN, EVERY OTHER DAY SUBCUTANEOUS), (), (3 G QOD,
     Route: 058
     Dates: start: 20110403, end: 20110405
  3. HIZENTRA [Suspect]
     Indication: IMMUNODEFICIENCY COMMON VARIABLE
     Dosage: (15 ML QOD, 15 ML (3 G) IN 1 SITE OVER 1 H 15 MIN, EVERY OTHER DAY SUBCUTANEOUS), (), (3 G QOD,
     Route: 058
     Dates: start: 20110403, end: 20110405
  4. ZYRTEC [Concomitant]
  5. HIZENTRA [Suspect]
  6. HIZENTRA [Suspect]
  7. AUGMENTIN '125' [Concomitant]
  8. HIZENTRA [Suspect]
  9. TRAMADOL HCL [Concomitant]
  10. FLEXERIL [Concomitant]
  11. QVAR [Concomitant]
  12. METHYLPREDNISOLONE [Concomitant]
  13. WARFARIN SODIUM [Concomitant]
  14. XOPENIEX (LEVOSALBUTAMOL) [Concomitant]
  15. DIPHENHYDRAMINE HCL [Concomitant]
  16. ALPRAZOLAM [Concomitant]

REACTIONS (16)
  - HEART RATE INCREASED [None]
  - RESPIRATORY DISORDER [None]
  - PYREXIA [None]
  - PAIN [None]
  - INFUSION SITE THROMBOSIS [None]
  - DIARRHOEA [None]
  - COAGULATION FACTOR VIII LEVEL INCREASED [None]
  - HYPERHIDROSIS [None]
  - DYSARTHRIA [None]
  - DYSPNOEA [None]
  - ANXIETY [None]
  - FEELING ABNORMAL [None]
  - CHEST DISCOMFORT [None]
  - PRURITUS [None]
  - HEADACHE [None]
  - HEART RATE IRREGULAR [None]
